FAERS Safety Report 18858137 (Version 1)
Quarter: 2021Q1

REPORT INFORMATION
  Report Type: Spontaneous
  Country: US (occurrence: US)
  Receive Date: 20210208
  Receipt Date: 20210208
  Transmission Date: 20210420
  Serious: Yes (Hospitalization, Other)
  Sender: FDA-Public Use
  Company Number: US-EPICPHARMA-US-2021EPCLIT00092

PATIENT
  Age: 63 Year
  Sex: Male

DRUGS (6)
  1. POTASSIUM CHLORIDE. [Suspect]
     Active Substance: POTASSIUM CHLORIDE
     Indication: PRODUCT USED FOR UNKNOWN INDICATION
     Dosage: 60 10 MEQ KCL TABLETS IN TOTAL
     Route: 048
  2. INSULIN [Interacting]
     Active Substance: INSULIN NOS
     Indication: SUPPORTIVE CARE
     Route: 065
  3. GLUCOSE [Interacting]
     Active Substance: DEXTROSE
     Indication: SUPPORTIVE CARE
  4. SALBUTAMOL [Interacting]
     Active Substance: ALBUTEROL
     Indication: SUPPORTIVE CARE
  5. CALCIUM GLUCONATE. [Interacting]
     Active Substance: CALCIUM GLUCONATE
     Indication: SUPPORTIVE CARE
     Route: 065
  6. SODIUM BICARBONATE. [Interacting]
     Active Substance: SODIUM BICARBONATE
     Indication: SUPPORTIVE CARE
     Route: 065

REACTIONS (7)
  - Atrial fibrillation [Unknown]
  - Hyperkalaemia [Unknown]
  - Intentional overdose [Unknown]
  - Asthenia [Unknown]
  - Gastric ischaemia [Unknown]
  - Mental status changes [Unknown]
  - Confusional state [Unknown]
